FAERS Safety Report 20874256 (Version 1)
Quarter: 2022Q2

REPORT INFORMATION
  Report Type: Spontaneous
  Country: None (occurrence: US)
  Receive Date: 20220525
  Receipt Date: 20220525
  Transmission Date: 20220721
  Serious: Yes (Other)
  Sender: FDA-Public Use
  Company Number: US-Sunstar Americas Inc.-2129171

PATIENT
  Sex: Male

DRUGS (1)
  1. PAROEX [Suspect]
     Active Substance: CHLORHEXIDINE GLUCONATE
     Indication: Product used for unknown indication
     Route: 048

REACTIONS (5)
  - Flank pain [Unknown]
  - Drug eruption [Unknown]
  - Polyp [Unknown]
  - Nasal inflammation [Unknown]
  - Aquagenic wrinkling of palms [Unknown]
